FAERS Safety Report 16774998 (Version 1)
Quarter: 2019Q3

REPORT INFORMATION
  Report Type: Spontaneous
  Country: FR (occurrence: FR)
  Receive Date: 20190905
  Receipt Date: 20190905
  Transmission Date: 20191005
  Serious: Yes (Hospitalization)
  Sender: FDA-Public Use
  Company Number: FR-ACCORD-153822

PATIENT
  Age: 74 Year
  Sex: Male

DRUGS (6)
  1. COTRIATEC [Concomitant]
     Active Substance: HYDROCHLOROTHIAZIDE\RAMIPRIL
     Indication: HYPERTENSION
     Route: 048
  2. OXALIPLATIN ACCORD [Suspect]
     Active Substance: OXALIPLATIN
     Indication: ADENOCARCINOMA PANCREAS
     Route: 042
     Dates: start: 20190509, end: 20190704
  3. FLUOROURACILE PFIZER [Suspect]
     Active Substance: FLUOROURACIL
     Indication: ADENOCARCINOMA PANCREAS
     Route: 042
     Dates: start: 20190509, end: 20190704
  4. CALCIUM LEVOFOLINATE [Concomitant]
     Active Substance: LEVOLEUCOVORIN CALCIUM
     Indication: ADENOCARCINOMA PANCREAS
     Route: 042
     Dates: start: 20190509
  5. NOVORAPID [Concomitant]
     Active Substance: INSULIN ASPART
     Indication: TYPE 1 DIABETES MELLITUS
     Route: 058
  6. IRINOTECAN MYLAN [Suspect]
     Active Substance: IRINOTECAN
     Indication: ADENOCARCINOMA PANCREAS
     Route: 042
     Dates: start: 20190509, end: 20190704

REACTIONS (2)
  - Off label use [Unknown]
  - Extremity necrosis [Recovered/Resolved with Sequelae]

NARRATIVE: CASE EVENT DATE: 20190711
